FAERS Safety Report 8104625-1 (Version None)
Quarter: 2012Q1

REPORT INFORMATION
  Report Type: 
  Country: None (occurrence: None)
  Receive Date: 20120130
  Receipt Date: 20120124
  Transmission Date: 20120608
  Serious: Yes (Other)
  Sender: FDA-Public Use
  Company Number: PHEH2011US010685

PATIENT
  Sex: Male

DRUGS (3)
  1. TEKTURNA [Suspect]
     Dosage: 150 MG, QD
  2. COZAAR [Concomitant]
     Dosage: 50 MG, QD
  3. TOPROL-XL [Concomitant]
     Dosage: 200 MG, QD

REACTIONS (1)
  - BLINDNESS [None]
